FAERS Safety Report 7336373-X (Version None)
Quarter: 2011Q1

REPORT INFORMATION
  Report Type: 
  Country: None (occurrence: None)
  Receive Date: 20110307
  Receipt Date: 20110215
  Transmission Date: 20110831
  Serious: Yes (Hospitalization)
  Sender: FDA-Public Use
  Company Number: FR-PFIZER INC-2010068312

PATIENT
  Age: 60 Year
  Sex: Male

DRUGS (9)
  1. CORDARONE [Suspect]
     Indication: ATRIAL FLUTTER
     Dosage: 200 MG, 1X/DAY
     Route: 048
     Dates: start: 20090205, end: 20090410
  2. FLUOROURACIL [Suspect]
     Indication: LIP AND/OR ORAL CAVITY CANCER
     Dosage: 1 CURE
     Route: 042
     Dates: start: 20090312, end: 20090312
  3. VOGALENE [Suspect]
     Indication: NAUSEA
     Dosage: 2.5 MG, 3X/DAY
     Route: 048
     Dates: start: 20090402, end: 20090421
  4. ACTISKENAN [Concomitant]
     Dosage: UNK
     Route: 048
     Dates: end: 20090421
  5. PARACETAMOL [Concomitant]
     Dosage: UNK
     Dates: end: 20090421
  6. TRIFLUCAN [Suspect]
     Indication: RADIATION OESOPHAGITIS
     Dosage: 50 MG, 1X/DAY
     Route: 048
     Dates: start: 20090402, end: 20090421
  7. LANSOPRAZOLE [Suspect]
     Dosage: 1 DF, 1X/DAY
     Route: 048
     Dates: start: 20090402, end: 20090421
  8. CISPLATIN [Suspect]
     Indication: LIP AND/OR ORAL CAVITY CANCER
     Dosage: 1 CURE
     Route: 042
     Dates: start: 20090312, end: 20090312
  9. ACTISKENAN [Concomitant]
     Dosage: UNK
     Dates: start: 20090507

REACTIONS (1)
  - DRUG ERUPTION [None]
